FAERS Safety Report 15529216 (Version 2)
Quarter: 2018Q4

REPORT INFORMATION
  Report Type: Spontaneous
  Country: VN (occurrence: VN)
  Receive Date: 20181020
  Receipt Date: 20181022
  Transmission Date: 20190205
  Serious: Yes (Hospitalization, Other)
  Sender: FDA-Public Use
  Company Number: VN-JNJFOC-20181014091

PATIENT

DRUGS (2)
  1. PARACETAMOL [Suspect]
     Active Substance: ACETAMINOPHEN
     Indication: PRODUCT USED FOR UNKNOWN INDICATION
     Route: 065
  2. PARACETAMOL [Suspect]
     Active Substance: ACETAMINOPHEN
     Route: 065

REACTIONS (21)
  - Product use issue [Unknown]
  - Nausea [Recovered/Resolved]
  - Hypoglycaemia [Recovered/Resolved]
  - Blood fibrinogen decreased [Recovered/Resolved]
  - Ammonia increased [Recovered/Resolved]
  - Toxicity to various agents [Recovered/Resolved]
  - Hypokalaemia [Recovered/Resolved]
  - Hepatomegaly [Recovered/Resolved]
  - Hyperglycaemia [Recovered/Resolved]
  - Vomiting [Recovered/Resolved]
  - Abdominal pain [Recovered/Resolved]
  - Aspartate aminotransferase increased [Recovered/Resolved]
  - Activated partial thromboplastin time prolonged [Recovered/Resolved]
  - Alanine aminotransferase increased [Recovered/Resolved]
  - Medication error [Unknown]
  - Off label use [Unknown]
  - Wrong dose [Unknown]
  - Mucosal haemorrhage [Recovered/Resolved]
  - Prothrombin time shortened [Recovered/Resolved]
  - Suicide attempt [Recovered/Resolved]
  - Somnolence [Recovered/Resolved]
